FAERS Safety Report 10234916 (Version 1)
Quarter: 2014Q2

REPORT INFORMATION
  Report Type: Spontaneous
  Country: US (occurrence: None)
  Receive Date: 20140520
  Receipt Date: 20140520
  Transmission Date: 20141212
  Serious: Yes (Hospitalization, Other)
  Sender: FDA-Public Use
  Company Number: 2013PL000095

PATIENT
  Age: 46 Year
  Sex: Female

DRUGS (6)
  1. AZATHIOPRINE (AZATHIOPRINE) [Suspect]
     Indication: PRODUCT USED FOR UNKNOWN INDICATION
  2. VELETRI [Suspect]
     Indication: PORTOPULMONARY HYPERTENSION
     Route: 042
     Dates: start: 20121227
  3. LETAIRIS (AMBRISENTAN) [Concomitant]
  4. LASIX?/00032601/ (FUROSEMIDE) [Concomitant]
  5. PRILOSEC /00661201/ (OMEPRAZOLE) [Concomitant]
  6. ALDACTONE /00006201/ (SPIRONOLACTONE) [Concomitant]

REACTIONS (2)
  - Staphylococcal skin infection [None]
  - Catheter site infection [None]
